FAERS Safety Report 21476691 (Version 4)
Quarter: 2022Q4

REPORT INFORMATION
  Report Type: Report from Study
  Country: US (occurrence: US)
  Receive Date: 20221019
  Receipt Date: 20221124
  Transmission Date: 20230112
  Serious: Yes (Other)
  Sender: FDA-Public Use
  Company Number: US-ABBVIE-22K-163-4494150-00

PATIENT
  Sex: Female
  Weight: 73 kg

DRUGS (8)
  1. HUMIRA [Suspect]
     Active Substance: ADALIMUMAB
     Indication: Rheumatoid arthritis
     Dosage: CITRATE FREE?FORM STRENGTH : 40 MILLIGRAM
     Route: 058
     Dates: start: 2019
  2. METFORMIN [Concomitant]
     Active Substance: METFORMIN HYDROCHLORIDE
     Indication: Product used for unknown indication
  3. RISEDRONATE SODIUM [Concomitant]
     Active Substance: RISEDRONATE SODIUM
     Indication: Osteopenia
  4. MODERNA COVID-19 VACCINE [Concomitant]
     Active Substance: ELASOMERAN
     Indication: COVID-19 immunisation
     Dosage: ONCE
     Route: 030
  5. MELOXICAM [Concomitant]
     Active Substance: MELOXICAM
     Indication: Inflammation
  6. METOPROLOL [Concomitant]
     Active Substance: METOPROLOL
     Indication: Product used for unknown indication
  7. ATORVASTATIN [Concomitant]
     Active Substance: ATORVASTATIN
     Indication: Product used for unknown indication
  8. TIMOLOL [Concomitant]
     Active Substance: TIMOLOL
     Indication: Ocular discomfort

REACTIONS (16)
  - Meniscus injury [Not Recovered/Not Resolved]
  - Patella fracture [Not Recovered/Not Resolved]
  - Arthralgia [Unknown]
  - Knee operation [Unknown]
  - Burning sensation [Unknown]
  - Knee operation [Unknown]
  - Fall [Not Recovered/Not Resolved]
  - Asthenia [Unknown]
  - Pain [Unknown]
  - Gait disturbance [Unknown]
  - Macular oedema [Unknown]
  - Swelling [Unknown]
  - Injury [Recovered/Resolved]
  - Hypoaesthesia [Unknown]
  - Joint swelling [Unknown]
  - Injury [Unknown]

NARRATIVE: CASE EVENT DATE: 20210101
